FAERS Safety Report 5200365-7 (Version None)
Quarter: 2007Q1

REPORT INFORMATION
  Report Type: 
  Country: None (occurrence: None)
  Receive Date: 20070105
  Receipt Date: 20061227
  Transmission Date: 20070707
  Serious: Yes (Other)
  Sender: FDA-Public Use
  Company Number: US-PFIZER INC-2007000325

PATIENT
  Sex: Male
  Weight: 98.4 kg

DRUGS (4)
  1. LIPITOR [Suspect]
     Indication: BLOOD CHOLESTEROL INCREASED
     Dates: start: 20051201, end: 20061101
  2. ALTACE [Concomitant]
  3. LANTUS [Concomitant]
     Dates: start: 19911015
  4. HUMALOG [Concomitant]

REACTIONS (2)
  - MUSCLE ENZYME INCREASED [None]
  - MUSCLE SPASMS [None]
